FAERS Safety Report 6681447 (Version 4)
Quarter: 2013Q2

REPORT INFORMATION
  Report Type: Spontaneous
  Country: US (occurrence: US)
  Receive Date: 20080626
  Receipt Date: 20130422
  Transmission Date: 20140414
  Serious: Yes (Death, Other)
  Sender: FDA-Public Use
  Company Number: US-ASTRAZENECA-2008UW12625

PATIENT
  Age: 29 Year
  Sex: Male

DRUGS (20)
  1. SEROQUEL [Suspect]
     Indication: INSOMNIA
     Route: 048
  2. SEROQUEL [Interacting]
     Indication: IRRITABILITY
     Route: 048
  3. SEROQUEL [Interacting]
     Indication: NIGHTMARE
     Route: 048
  4. SEROQUEL [Interacting]
     Indication: PARANOIA
     Route: 048
  5. SEROQUEL [Interacting]
     Indication: ANXIETY
     Route: 048
  6. SEROQUEL [Interacting]
     Indication: DEPRESSED MOOD
     Route: 048
  7. SEROQUEL [Interacting]
     Indication: POST-TRAUMATIC STRESS DISORDER
     Route: 048
  8. SEROQUEL [Interacting]
     Indication: INSOMNIA
     Route: 048
  9. SEROQUEL [Interacting]
     Indication: IRRITABILITY
     Route: 048
  10. SEROQUEL [Interacting]
     Indication: NIGHTMARE
     Route: 048
  11. SEROQUEL [Interacting]
     Indication: PARANOIA
     Route: 048
  12. SEROQUEL [Interacting]
     Indication: ANXIETY
     Route: 048
  13. SEROQUEL [Interacting]
     Indication: DEPRESSED MOOD
     Route: 048
  14. SEROQUEL [Interacting]
     Indication: POST-TRAUMATIC STRESS DISORDER
     Route: 048
  15. KLONOPIN [Interacting]
     Indication: POST-TRAUMATIC STRESS DISORDER
     Route: 065
  16. PAXIL [Interacting]
     Route: 065
  17. VALPROIC ACID [Interacting]
     Indication: IRRITABILITY
     Route: 065
  18. VALPROIC ACID [Interacting]
     Indication: ANGER
     Route: 065
  19. GABAPENTIN [Concomitant]
     Indication: ARTHRALGIA
  20. MORPHINE [Concomitant]

REACTIONS (21)
  - Drug interaction [Fatal]
  - Death [Fatal]
  - Suicidal behaviour [Unknown]
  - Sedation [Unknown]
  - Overdose [Unknown]
  - Post-traumatic stress disorder [Unknown]
  - Feeling abnormal [Unknown]
  - Headache [Unknown]
  - Arthralgia [Unknown]
  - Sleep paralysis [Unknown]
  - Memory impairment [Unknown]
  - Feeling abnormal [Unknown]
  - Dysphonia [Unknown]
  - Sleep apnoea syndrome [Unknown]
  - Nightmare [Unknown]
  - Weight increased [Unknown]
  - Swelling face [Unknown]
  - Local swelling [Unknown]
  - Tremor [Unknown]
  - Fatigue [Unknown]
  - Urinary retention [Unknown]
